FAERS Safety Report 6918171-1 (Version None)
Quarter: 2010Q3

REPORT INFORMATION
  Report Type: 
  Country: None (occurrence: None)
  Receive Date: 20100806
  Receipt Date: 20100414
  Transmission Date: 20110219
  Serious: Yes (Disabling, Other)
  Sender: FDA-Public Use
  Company Number: APP201000270

PATIENT
  Sex: Male

DRUGS (3)
  1. HEPARIN SODIUM INJECTION [Suspect]
     Indication: PRODUCT USED FOR UNKNOWN INDICATION
     Dosage: UNK, INTRAVENOUS
     Route: 042
     Dates: start: 20071210
  2. INTRAVENOUS FLUIDS [Concomitant]
  3. INTRAVENOUS MEDICINES [Concomitant]

REACTIONS (4)
  - ILL-DEFINED DISORDER [None]
  - PAIN [None]
  - PRODUCT CONTAMINATION MICROBIAL [None]
  - SERRATIA TEST POSITIVE [None]
